FAERS Safety Report 24686352 (Version 1)
Quarter: 2024Q4

REPORT INFORMATION
  Report Type: Spontaneous
  Country: CN (occurrence: CN)
  Receive Date: 20241202
  Receipt Date: 20241202
  Transmission Date: 20250114
  Serious: Yes (Hospitalization, Other)
  Sender: PFIZER
  Company Number: CN-PFIZER INC-PV202400153583

PATIENT
  Age: 52 Year
  Sex: Female
  Weight: 44.6 kg

DRUGS (5)
  1. CYTARABINE [Suspect]
     Active Substance: CYTARABINE
     Indication: Chemotherapy
     Dosage: 100 MG Q12H D1-7
     Dates: start: 20240524
  2. CYTARABINE [Suspect]
     Active Substance: CYTARABINE
     Dosage: 2.5G Q12H D1-3
     Dates: start: 20240711
  3. CYTARABINE [Suspect]
     Active Substance: CYTARABINE
     Dosage: 2.5G Q12H D1-3
     Dates: start: 20240820
  4. CYTARABINE [Suspect]
     Active Substance: CYTARABINE
     Dosage: 2.5G, Q12H, D1-3
     Route: 041
     Dates: start: 20241007, end: 20241009
  5. DAUNORUBICIN [Concomitant]
     Active Substance: DAUNORUBICIN
     Indication: Chemotherapy
     Dosage: 80 MG D1-3
     Dates: start: 20240524

REACTIONS (6)
  - Cough [Not Recovered/Not Resolved]
  - Rash erythematous [Recovering/Resolving]
  - Pyrexia [Recovering/Resolving]
  - Sputum discoloured [Recovered/Resolved]
  - Pallor [Unknown]
  - Blood pressure increased [Unknown]

NARRATIVE: CASE EVENT DATE: 20240101
